FAERS Safety Report 9409676 (Version 1)
Quarter: 2013Q2

REPORT INFORMATION
  Report Type: Spontaneous
  Country: US (occurrence: None)
  Receive Date: 20130605
  Receipt Date: 20130605
  Transmission Date: 20140414
  Serious: Yes (Other)
  Sender: FDA-Public Use
  Company Number: 2013P1006603

PATIENT
  Age: 47 Year
  Sex: Female

DRUGS (1)
  1. INFUMORPH [Suspect]
     Indication: SPINAL PAIN

REACTIONS (3)
  - Drug withdrawal syndrome [None]
  - Medical device complication [None]
  - No therapeutic response [None]
